FAERS Safety Report 17973446 (Version 1)
Quarter: 2020Q3

REPORT INFORMATION
  Report Type: Spontaneous
  Country: US (occurrence: US)
  Receive Date: 20200702
  Receipt Date: 20200702
  Transmission Date: 20201103
  Serious: No
  Sender: FDA-Public Use
  Company Number: US-AXELLIA-002848

PATIENT
  Sex: Male

DRUGS (1)
  1. COLISTIN [Suspect]
     Active Substance: COLISTIN
     Indication: PSEUDOMONAS INFECTION
     Dosage: 2 VIALS/DAY I.E 300 MG?NEBULIZER

REACTIONS (4)
  - Incorrect route of product administration [Unknown]
  - Oropharyngeal discomfort [Unknown]
  - Product prescribing error [Unknown]
  - Dyspnoea [Unknown]
